FAERS Safety Report 9462415 (Version 1)
Quarter: 2013Q3

REPORT INFORMATION
  Report Type: Spontaneous
  Country: GR (occurrence: GR)
  Receive Date: 20130816
  Receipt Date: 20130816
  Transmission Date: 20140515
  Serious: Yes (Hospitalization, Other)
  Sender: FDA-Public Use
  Company Number: PHHY2013GR086245

PATIENT
  Age: 76 Year
  Sex: Female

DRUGS (2)
  1. ISONIAZID [Suspect]
     Indication: LATENT TUBERCULOSIS
  2. GLIMEPIRIDE [Interacting]

REACTIONS (5)
  - Hypoglycaemia [Unknown]
  - Palpitations [Unknown]
  - Cold sweat [Unknown]
  - Lethargy [Unknown]
  - Drug interaction [Unknown]
